FAERS Safety Report 7676462-3 (Version None)
Quarter: 2011Q3

REPORT INFORMATION
  Report Type: 
  Country: None (occurrence: None)
  Receive Date: 20110811
  Receipt Date: 20110804
  Transmission Date: 20111222
  Serious: Yes (Death, Hospitalization)
  Sender: FDA-Public Use
  Company Number: US-CELGENEUS-163-21880-11071506

PATIENT
  Sex: Female
  Weight: 54.026 kg

DRUGS (3)
  1. REVLIMID [Suspect]
     Indication: MULTIPLE MYELOMA
     Dosage: 25 MILLIGRAM
     Route: 048
     Dates: start: 20110629, end: 20110705
  2. DEXAMETHASONE [Concomitant]
     Dosage: 10-20MG
     Route: 065
     Dates: start: 20110628, end: 20110705
  3. VELCADE [Concomitant]
     Dosage: 2 MILLIGRAM
     Route: 041
     Dates: start: 20110628, end: 20110705

REACTIONS (6)
  - GASTROINTESTINAL NECROSIS [None]
  - LARGE INTESTINE PERFORATION [None]
  - HAEMORRHAGE [None]
  - SEPSIS [None]
  - HYPERTENSION [None]
  - MULTI-ORGAN FAILURE [None]
